FAERS Safety Report 6525653-3 (Version None)
Quarter: 2010Q1

REPORT INFORMATION
  Report Type: 
  Country: None (occurrence: None)
  Receive Date: 20100104
  Receipt Date: 20091223
  Transmission Date: 20100710
  Serious: Yes (Disabling, Other)
  Sender: FDA-Public Use
  Company Number: GB-ELI_LILLY_AND_COMPANY-GB200910000691

PATIENT
  Sex: Female
  Weight: 82 kg

DRUGS (4)
  1. CYMBALTA [Suspect]
     Indication: DEPRESSION
     Dosage: 30 MG, DAILY (1/D)
     Route: 048
     Dates: start: 20090417, end: 20091001
  2. DIAZEPAM [Concomitant]
     Dosage: UNK, UNKNOWN
     Route: 065
  3. MORPHINE SULFATE [Concomitant]
     Dosage: UNK, UNKNOWN
     Route: 065
  4. FENTANYL-100 [Concomitant]
     Indication: PAIN
     Dosage: UNK, UNKNOWN
     Route: 065

REACTIONS (3)
  - OVARIAN HAEMATOMA [None]
  - PELVIC HAEMATOMA [None]
  - PELVIC PAIN [None]
